FAERS Safety Report 23552338 (Version 2)
Quarter: 2024Q1

REPORT INFORMATION
  Report Type: Report from Study
  Country: US (occurrence: US)
  Receive Date: 20240222
  Receipt Date: 20240314
  Transmission Date: 20240410
  Serious: Yes (Death, Other)
  Sender: FDA-Public Use
  Company Number: US-TAKEDA-2020TUS051560

PATIENT
  Age: 89 Year
  Sex: Male

DRUGS (1)
  1. VEDOLIZUMAB [Suspect]
     Active Substance: VEDOLIZUMAB
     Indication: Colitis
     Dosage: 300 MILLIGRAM
     Route: 042

REACTIONS (3)
  - Death [Fatal]
  - Hypoacusis [Unknown]
  - Speech disorder [Unknown]

NARRATIVE: CASE EVENT DATE: 20240217
